FAERS Safety Report 9314326 (Version 1)
Quarter: 2013Q2

REPORT INFORMATION
  Report Type: Spontaneous
  Country: NL (occurrence: NL)
  Receive Date: 20130529
  Receipt Date: 20130529
  Transmission Date: 20140414
  Serious: Yes (Other)
  Sender: FDA-Public Use
  Company Number: NL-TEVA-406918ISR

PATIENT
  Sex: 0

DRUGS (5)
  1. ENALAPRIL TABLET 20MG [Suspect]
     Indication: HYPERTENSION
     Route: 048
     Dates: start: 19980724, end: 20100105
  2. METFORMINE TABLET 500MG [Suspect]
     Indication: DIABETES MELLITUS
     Route: 048
  3. TAVANIC TABLET OMHULD 500MG [Concomitant]
     Dosage: ACCORDING TO SCHEDULE
     Route: 048
  4. INSULATARD INJ 100IE/ML FLACON 10ML [Concomitant]
     Indication: DIABETES MELLITUS
     Dosage: ACCORDING TO SCHEDULE
     Route: 058
  5. LEVEMIR FLEXPEN INJ 100E/ML WWSP 3ML [Concomitant]
     Indication: DIABETES MELLITUS
     Dosage: ACCORDING TO SCHEDULE
     Route: 058

REACTIONS (3)
  - Hypertension [Recovered/Resolved]
  - Insomnia [Unknown]
  - Eye pain [Not Recovered/Not Resolved]
